FAERS Safety Report 8405881-2 (Version None)
Quarter: 2012Q2

REPORT INFORMATION
  Report Type: 
  Country: None (occurrence: None)
  Receive Date: 20120529
  Receipt Date: 20051220
  Transmission Date: 20120825
  Serious: Yes (Hospitalization)
  Sender: FDA-Public Use
  Company Number: 15691-USA-05-3210

PATIENT
  Age: 49 Year
  Sex: Male

DRUGS (9)
  1. FOSINOPRIL SODIUM [Concomitant]
  2. POTASSIUM AND MAGNESIUM ASPARTATE (MAGNESIUM ASPARTATE, ASPARTATE  POT [Concomitant]
  3. FUROSEMIDE [Concomitant]
  4. ETHACRYNIC ACID (ETACRYNIC ACID) [Concomitant]
  5. DIGOXIN [Concomitant]
  6. TOLVAPTAN (TOLVAPTAN(V4.1)) 30MG [Suspect]
     Indication: CARDIAC FAILURE CONGESTIVE
     Dosage: 30 MG, QD, ORAL
     Route: 048
     Dates: start: 20051223
  7. TOLVAPTAN (TOLVAPTAN(V4.1)) 30MG [Suspect]
     Indication: CARDIAC FAILURE CONGESTIVE
     Dosage: 30 MG, QD, ORAL
     Route: 048
     Dates: start: 20050824, end: 20051218
  8. ASPIRIN [Concomitant]
  9. CARVEDILOL [Concomitant]

REACTIONS (2)
  - CARDIAC FAILURE [None]
  - BLOOD POTASSIUM DECREASED [None]
